FAERS Safety Report 6407437-X (Version None)
Quarter: 2009Q4

REPORT INFORMATION
  Report Type: 
  Country: None (occurrence: None)
  Receive Date: 20091014
  Receipt Date: 20091005
  Transmission Date: 20100525
  Serious: Yes (Hospitalization)
  Sender: FDA-Public Use
  Company Number: 398500

PATIENT
  Age: 54 Year
  Sex: Male

DRUGS (1)
  1. DOBUTAMINE HCL [Suspect]
     Indication: STRESS ECHOCARDIOGRAM
     Dosage: 5 UG/KG PER MINUTE THEN INCREASED UPTO 15 UG/KG PER MINUTE AT 3-MINUTE INTERVAL INTRAVENOUS DRIP
     Route: 041

REACTIONS (6)
  - ACUTE MYOCARDIAL INFARCTION [None]
  - AGITATION [None]
  - ARTERIOSPASM CORONARY [None]
  - ELECTROCARDIOGRAM ST SEGMENT ELEVATION [None]
  - PRINZMETAL ANGINA [None]
  - TROPONIN T INCREASED [None]
